FAERS Safety Report 8866106 (Version 1)
Quarter: 2012Q4

REPORT INFORMATION
  Report Type: 
  Country: CO (occurrence: CO)
  Receive Date: 20121025
  Receipt Date: 20121025
  Transmission Date: 20130627
  Serious: Yes (Hospitalization, Other)
  Sender: FDA-Public Use
  Company Number: CO-ROCHE-1148545

PATIENT
  Sex: Female

DRUGS (1)
  1. LUCENTIS [Suspect]
     Indication: EYE DISORDER
     Route: 050
     Dates: start: 20120711, end: 20120917

REACTIONS (2)
  - Fall [Unknown]
  - Limb injury [Unknown]
